FAERS Safety Report 4719246-8 (Version None)
Quarter: 2005Q3

REPORT INFORMATION
  Report Type: 
  Country: None (occurrence: None)
  Receive Date: 20050718
  Receipt Date: 20050322
  Transmission Date: 20060218
  Serious: No
  Sender: FDA-Public Use
  Company Number: 2005000589

PATIENT
  Age: 60 Year
  Sex: Female

DRUGS (8)
  1. TARCEVA [Suspect]
     Indication: NON-SMALL CELL LUNG CANCER
     Dosage: 150 MG (QD), ORAL
     Route: 048
     Dates: start: 20050126, end: 20050308
  2. NEURONTIN [Concomitant]
  3. VITAMIN C(ASCORBIC ACID) [Concomitant]
  4. COENZYME Q10 [Concomitant]
  5. ASPIRIN [Concomitant]
  6. ADVIL [Concomitant]
  7. TYLENOL PM(TYLENOL PM) [Concomitant]
  8. ZETTIA [Concomitant]

REACTIONS (4)
  - ARTHRALGIA [None]
  - LIVER FUNCTION TEST ABNORMAL [None]
  - PYREXIA [None]
  - RASH [None]
